FAERS Safety Report 4668892-9 (Version None)
Quarter: 2005Q2

REPORT INFORMATION
  Report Type: 
  Country: None (occurrence: None)
  Receive Date: 20050523
  Receipt Date: 20040922
  Transmission Date: 20051028
  Serious: Yes (Other)
  Sender: FDA-Public Use
  Company Number: PHBS2004BE12842

PATIENT
  Age: 57 Year
  Sex: Female
  Weight: 54 kg

DRUGS (7)
  1. DOXORUBICIN HCL [Concomitant]
     Route: 065
  2. DOCETAXEL [Concomitant]
     Route: 065
  3. KREDEX [Concomitant]
     Route: 065
  4. INSULIN [Concomitant]
     Route: 065
  5. ZESTRIL [Concomitant]
     Route: 065
  6. LASIX [Concomitant]
     Route: 065
  7. ZOMETA [Suspect]
     Indication: BREAST CANCER
     Dosage: 4 MG MONTHLY
     Route: 042
     Dates: start: 20021001

REACTIONS (2)
  - OSTEONECROSIS [None]
  - SURGERY [None]
